FAERS Safety Report 12538908 (Version 1)
Quarter: 2016Q3

REPORT INFORMATION
  Report Type: Spontaneous
  Country: US (occurrence: None)
  Receive Date: 20160707
  Receipt Date: 20160707
  Transmission Date: 20161109
  Serious: Yes (Death)
  Sender: FDA-Public Use
  Company Number: None

PATIENT
  Age: 49 Year
  Sex: Male
  Weight: 96.1 kg

DRUGS (9)
  1. LIDOCAINE. [Concomitant]
     Active Substance: LIDOCAINE
  2. NITROGLYCERIN. [Concomitant]
     Active Substance: NITROGLYCERIN
  3. ANGIOGRAM DYE [Concomitant]
     Active Substance: UNSPECIFIED INGREDIENT
  4. VERAPAMIL [Concomitant]
     Active Substance: VERAPAMIL HYDROCHLORIDE
  5. CARVEDILOL. [Concomitant]
     Active Substance: CARVEDILOL
  6. FUROSEMIDE. [Concomitant]
     Active Substance: FUROSEMIDE
  7. MIDAZOLAM [Concomitant]
     Active Substance: MIDAZOLAM\MIDAZOLAM HYDROCHLORIDE
  8. VISIPAQUE [Suspect]
     Active Substance: IODIXANOL
     Indication: CATHETERISATION CARDIAC
     Dosage: MINUTES
     Route: 013
     Dates: start: 20160517
  9. HEPARIN [Concomitant]
     Active Substance: HEPARIN SODIUM

REACTIONS (5)
  - Cardiac arrest [None]
  - Circulatory collapse [None]
  - Coronary artery occlusion [None]
  - Coronary artery thrombosis [None]
  - Seizure [None]

NARRATIVE: CASE EVENT DATE: 20160517
